FAERS Safety Report 25622495 (Version 1)
Quarter: 2025Q3

REPORT INFORMATION
  Report Type: Report from Study
  Country: PR (occurrence: PR)
  Receive Date: 20250730
  Receipt Date: 20250730
  Transmission Date: 20251020
  Serious: Yes (Hospitalization, Other)
  Sender: MALLINCKRODT
  Company Number: PR-MALLINCKRODT-MNK202502014

PATIENT
  Sex: Female

DRUGS (1)
  1. CORTICOTROPIN [Suspect]
     Active Substance: CORTICOTROPIN
     Indication: Sarcoidosis

REACTIONS (12)
  - Diabetes mellitus [Not Recovered/Not Resolved]
  - Hospitalisation [Unknown]
  - Blood pressure systolic increased [Unknown]
  - Somnolence [Unknown]
  - Vitamin D decreased [Unknown]
  - Vitamin E decreased [Unknown]
  - Sunburn [Unknown]
  - Rash [Unknown]
  - Dehydration [Unknown]
  - Headache [Unknown]
  - Insomnia [Unknown]
  - Mood altered [Unknown]

NARRATIVE: CASE EVENT DATE: 20240101
